FAERS Safety Report 20043059 (Version 1)
Quarter: 2021Q4

REPORT INFORMATION
  Report Type: Report from Study
  Country: US (occurrence: US)
  Receive Date: 20211108
  Receipt Date: 20211108
  Transmission Date: 20220303
  Serious: Yes (Other)
  Sender: FDA-Public Use
  Company Number: US-ABBVIE-21K-163-4080207-00

PATIENT
  Sex: Male

DRUGS (1)
  1. VENCLEXTA [Suspect]
     Active Substance: VENETOCLAX
     Indication: Product used for unknown indication
     Dosage: TAKE 2 TABLETS BY MOUTH ONCE DAILY WITH FOOD FULL GLASS OF WATER FOR 7 DAYS.?21 DAYS OFF
     Route: 048

REACTIONS (2)
  - Gastric perforation [Unknown]
  - Off label use [Unknown]
